FAERS Safety Report 9316513 (Version 3)
Quarter: 2014Q3

REPORT INFORMATION
  Report Type: Report from Study
  Country: CA (occurrence: CA)
  Receive Date: 20130530
  Receipt Date: 20140929
  Transmission Date: 20150326
  Serious: Yes (Other)
  Sender: FDA-Public Use
  Company Number: CA-MPIJNJ-2013-03774

PATIENT

DRUGS (3)
  1. DEXAMETHASONE. [Concomitant]
     Active Substance: DEXAMETHASONE
     Indication: AMYLOIDOSIS
  2. CYCLOPHOSPHAMIDE. [Concomitant]
     Active Substance: CYCLOPHOSPHAMIDE
     Indication: AMYLOIDOSIS
  3. VELCADE [Suspect]
     Active Substance: BORTEZOMIB
     Indication: AMYLOIDOSIS
     Dosage: UNK
     Route: 065
     Dates: start: 201210

REACTIONS (11)
  - Compression fracture [Unknown]
  - Cardiogenic shock [Unknown]
  - Arrhythmia [Unknown]
  - Renal failure [Unknown]
  - Renal amyloidosis [Unknown]
  - Constipation [Unknown]
  - Arthralgia [Unknown]
  - Muscle spasms [Unknown]
  - Off label use [Unknown]
  - Cardiac amyloidosis [Unknown]
  - Neck pain [Unknown]
